FAERS Safety Report 8548789-4 (Version None)
Quarter: 2012Q3

REPORT INFORMATION
  Report Type: 
  Country: None (occurrence: None)
  Receive Date: 20120730
  Receipt Date: 20120716
  Transmission Date: 20120928
  Serious: Yes (Death, Other)
  Sender: FDA-Public Use
  Company Number: US-RANBAXY-2012US-58202

PATIENT
  Age: 26 Year
  Sex: Female

DRUGS (2)
  1. ZIPRASIDONE HCL [Suspect]
     Indication: PSYCHOTIC BEHAVIOUR
     Dosage: UNKNOWN
     Route: 065
  2. RISPERIDONE [Suspect]
     Indication: PSYCHOTIC BEHAVIOUR
     Dosage: UNKNOWN
     Route: 065

REACTIONS (3)
  - ABULIA [None]
  - MUSCLE SPASTICITY [None]
  - DELUSION [None]
